FAERS Safety Report 7743912-3 (Version None)
Quarter: 2011Q3

REPORT INFORMATION
  Report Type: 
  Country: None (occurrence: None)
  Receive Date: 20110912
  Receipt Date: 20110906
  Transmission Date: 20111222
  Serious: Yes (Other)
  Sender: FDA-Public Use
  Company Number: JP-GLAXOSMITHKLINE-B0700808A

PATIENT
  Age: 31 Year
  Sex: Female

DRUGS (3)
  1. FLUTICASONE PROPIONATE [Suspect]
     Indication: PRODUCT USED FOR UNKNOWN INDICATION
     Route: 045
  2. OLOPATADINE HCL [Concomitant]
     Route: 048
     Dates: start: 20110216
  3. FLUTICASONE PROPIONATE [Suspect]
     Route: 045
     Dates: start: 20110216

REACTIONS (3)
  - ASTHMA [None]
  - RHINORRHOEA [None]
  - RHINITIS ALLERGIC [None]
